FAERS Safety Report 4445061-9 (Version None)
Quarter: 2004Q3

REPORT INFORMATION
  Report Type: 
  Country: None (occurrence: None)
  Receive Date: 20040907
  Receipt Date: 20040823
  Transmission Date: 20050211
  Serious: Yes (Other)
  Sender: FDA-Public Use
  Company Number: 2004057238

PATIENT
  Age: 56 Year
  Sex: Male

DRUGS (4)
  1. NEURONTIN [Suspect]
     Indication: PAIN
     Dosage: ORAL
     Route: 048
  2. WARFARIN SODIUM [Suspect]
     Indication: INTERNATIONAL NORMALISED RATIO ABNORMAL
     Dosage: 12 MG (12 MG, 1 IN 1 D), ORAL
     Route: 048
     Dates: start: 20040720
  3. NICOTINE [Concomitant]
  4. CELECOXIB [Concomitant]

REACTIONS (4)
  - DRUG EFFECT DECREASED [None]
  - DRUG INTERACTION [None]
  - INTERNATIONAL NORMALISED RATIO DECREASED [None]
  - PULMONARY EMBOLISM [None]
